FAERS Safety Report 5950222-3 (Version None)
Quarter: 2008Q4

REPORT INFORMATION
  Report Type: 
  Country: None (occurrence: None)
  Receive Date: 20081112
  Receipt Date: 20081105
  Transmission Date: 20090506
  Serious: Yes (Life-Threatening, Hospitalization)
  Sender: FDA-Public Use
  Company Number: B0545751A

PATIENT
  Age: 74 Year
  Sex: Female

DRUGS (9)
  1. ZINACEF [Suspect]
     Indication: PROPHYLAXIS
     Dosage: 1.5MG SINGLE DOSE
     Route: 042
     Dates: start: 20081030, end: 20081030
  2. METRONIDAZOLE [Suspect]
     Indication: PROPHYLAXIS
     Dosage: .5G SINGLE DOSE
     Route: 042
     Dates: start: 20081030, end: 20081030
  3. PROPOFOL [Suspect]
     Dosage: 120MG SINGLE DOSE
     Route: 042
     Dates: start: 20081030, end: 20081030
  4. FENTANYL [Suspect]
     Dosage: .1MG SINGLE DOSE
     Route: 042
     Dates: start: 20081030, end: 20081030
  5. LIDOCAINE [Suspect]
     Dosage: 30MG SINGLE DOSE
     Route: 042
     Dates: start: 20081030, end: 20081030
  6. ROBINUL [Suspect]
     Dosage: .2MG SINGLE DOSE
     Route: 042
     Dates: start: 20081030, end: 20081030
  7. ROCURONIUM BROMIDE [Suspect]
     Dosage: 40MG SINGLE DOSE
     Route: 042
     Dates: start: 20081030, end: 20081030
  8. DIAPAM [Concomitant]
     Indication: PREMEDICATION
     Dosage: 5MG SINGLE DOSE
     Route: 048
     Dates: start: 20081030, end: 20081030
  9. OMEPRAZOLE [Concomitant]
     Indication: PREMEDICATION
     Dosage: 20U SINGLE DOSE
     Route: 048
     Dates: start: 20081030, end: 20081030

REACTIONS (4)
  - ANAPHYLACTIC REACTION [None]
  - BLOOD PRESSURE SYSTOLIC DECREASED [None]
  - OBSTRUCTIVE AIRWAYS DISORDER [None]
  - RASH ERYTHEMATOUS [None]
